FAERS Safety Report 9182456 (Version 1)
Quarter: 2013Q1

REPORT INFORMATION
  Report Type: Spontaneous
  Country: US (occurrence: None)
  Receive Date: 20130321
  Receipt Date: 20130321
  Transmission Date: 20140127
  Serious: Yes (Other)
  Sender: FDA-Public Use
  Company Number: None

PATIENT
  Age: 53 Year
  Sex: Female
  Weight: 86.18 kg

DRUGS (3)
  1. METAXALONE [Suspect]
     Dosage: 1 TABLET 2X AS NEEDED
     Dates: start: 200503
  2. METAXALONE [Suspect]
     Dosage: 1 TABLET 2X AS NEEDED
     Dates: start: 200503
  3. NOVALOG [Concomitant]

REACTIONS (1)
  - Blood glucose increased [None]
